FAERS Safety Report 4579479-0 (Version None)
Quarter: 2005Q1

REPORT INFORMATION
  Report Type: 
  Country: None (occurrence: None)
  Receive Date: 20050209
  Receipt Date: 20050125
  Transmission Date: 20050727
  Serious: Yes (Life-Threatening, Hospitalization)
  Sender: FDA-Public Use
  Company Number: EWC041242054

PATIENT
  Age: 62 Year
  Sex: Male
  Weight: 111 kg

DRUGS (2)
  1. GEMZAR [Suspect]
     Indication: NON-SMALL CELL LUNG CANCER
     Dosage: 2800 MG OTHER
     Dates: start: 20041123, end: 20041130
  2. CISPLATIN [Concomitant]

REACTIONS (4)
  - AGRANULOCYTOSIS [None]
  - DIALYSIS [None]
  - RENAL FAILURE [None]
  - THROMBOCYTOPENIA [None]
